FAERS Safety Report 9442992 (Version 1)
Quarter: 2013Q3

REPORT INFORMATION
  Report Type: Spontaneous
  Country: ES (occurrence: ES)
  Receive Date: 20130806
  Receipt Date: 20130806
  Transmission Date: 20140515
  Serious: Yes (Hospitalization)
  Sender: FDA-Public Use
  Company Number: ES-WATSON-2013-13636

PATIENT
  Sex: 0

DRUGS (1)
  1. LEVETIRACETAM (UNKNOWN) [Suspect]
     Indication: CONVULSION NEONATAL
     Dosage: 30 MG/KG, BID
     Route: 048
     Dates: start: 20130628, end: 20130719

REACTIONS (5)
  - Muscular weakness [Recovered/Resolved]
  - Myoglobinuria [Recovered/Resolved]
  - Blood creatine phosphokinase increased [Recovered/Resolved]
  - Aspartate aminotransferase increased [Recovered/Resolved]
  - Alanine aminotransferase increased [Recovered/Resolved]
